FAERS Safety Report 9022438 (Version 2)
Quarter: 2013Q1

REPORT INFORMATION
  Report Type: Spontaneous
  Country: CH (occurrence: CH)
  Receive Date: 20130118
  Receipt Date: 20130129
  Transmission Date: 20140127
  Serious: Yes (Life-Threatening, Hospitalization)
  Sender: FDA-Public Use
  Company Number: CH-BAYER-2013-003999

PATIENT
  Age: 42 Year
  Sex: Female

DRUGS (2)
  1. BETAFERON [Suspect]
     Indication: MULTIPLE SCLEROSIS
     Dosage: 250 ?G, QOD
     Route: 058
     Dates: start: 19950901, end: 201211
  2. DAFALGAN [Concomitant]
     Dosage: UNK

REACTIONS (2)
  - Coma uraemic [Recovering/Resolving]
  - Renal failure acute [Recovering/Resolving]
